FAERS Safety Report 4895095-5 (Version None)
Quarter: 2006Q1

REPORT INFORMATION
  Report Type: 
  Country: None (occurrence: None)
  Receive Date: 20060130
  Receipt Date: 20050801
  Transmission Date: 20060701
  Serious: Yes (Hospitalization)
  Sender: FDA-Public Use
  Company Number: CH-BRISTOL-MYERS SQUIBB COMPANY-13252655

PATIENT
  Age: 58 Year
  Sex: Female

DRUGS (2)
  1. TRITTICO [Suspect]
     Indication: DEPRESSION
     Route: 048
     Dates: start: 20041201
  2. CHLORALDURAT [Concomitant]

REACTIONS (2)
  - CYSTITIS NONINFECTIVE [None]
  - URINARY RETENTION [None]
